FAERS Safety Report 9345354 (Version 1)
Quarter: 2013Q2

REPORT INFORMATION
  Report Type: Spontaneous
  Country: NL (occurrence: NL)
  Receive Date: 20130613
  Receipt Date: 20130613
  Transmission Date: 20140414
  Serious: Yes (Other)
  Sender: FDA-Public Use
  Company Number: NL-PFIZER INC-2013171314

PATIENT
  Age: 44 Year
  Sex: Female

DRUGS (1)
  1. METHYLPREDNISOLONE SODIUM SUCCINATE [Suspect]
     Indication: MULTIPLE SCLEROSIS RELAPSE
     Dosage: THREE-DAY COURSE (1000 MG INTRAVENOUSLY)
     Route: 042
     Dates: start: 2008

REACTIONS (1)
  - Hepatitis [Recovered/Resolved]
